FAERS Safety Report 8855797 (Version 2)
Quarter: 2015Q4

REPORT INFORMATION
  Report Type: Report from Study
  Country: US (occurrence: US)
  Receive Date: 20121023
  Receipt Date: 20151028
  Transmission Date: 20160305
  Serious: No
  Sender: FDA-Public Use
  Company Number: US-AMGEN-USASP2012058787

PATIENT
  Age: 70 Year
  Sex: Female

DRUGS (1)
  1. ENBREL [Suspect]
     Active Substance: ETANERCEPT
     Indication: RHEUMATOID ARTHRITIS
     Dosage: 25 MG, 2 TIMES/WK
     Route: 058
     Dates: start: 19981214

REACTIONS (4)
  - Arthralgia [Not Recovered/Not Resolved]
  - Fungal infection [Unknown]
  - Blepharitis [Unknown]
  - Eye operation [Unknown]

NARRATIVE: CASE EVENT DATE: 2013
